FAERS Safety Report 5146371-2 (Version None)
Quarter: 2006Q4

REPORT INFORMATION
  Report Type: 
  Country: None (occurrence: None)
  Receive Date: 20061102
  Receipt Date: 20060923
  Transmission Date: 20070319
  Serious: Yes (Hospitalization, Other)
  Sender: FDA-Public Use
  Company Number: 2006SP002786

PATIENT
  Age: 50 Year
  Sex: Female

DRUGS (14)
  1. PEG-INTRON [Suspect]
     Indication: HEPATITIS C
     Dosage: SC
     Route: 058
     Dates: start: 20060720, end: 20060815
  2. REBETOL [Suspect]
     Indication: HEPATITIS C
     Dosage: PO
     Route: 048
     Dates: start: 20060720, end: 20060815
  3. CARISOPRODOL (S-P) [Concomitant]
  4. COMBIVENT [Concomitant]
  5. FLOVENT [Concomitant]
  6. LEVOTHYROXINE SODIUM [Concomitant]
  7. LISINOPRIL [Concomitant]
  8. NEXIUM [Concomitant]
  9. OPTIVAR [Concomitant]
  10. PAXIL [Concomitant]
  11. SEROQUEL [Concomitant]
  12. VICODIN [Concomitant]
  13. WELLBUTRIN [Concomitant]
  14. XANAX [Concomitant]

REACTIONS (6)
  - COMA [None]
  - DEHYDRATION [None]
  - MALNUTRITION [None]
  - PALLOR [None]
  - RENAL FAILURE [None]
  - SEPSIS [None]
